FAERS Safety Report 9021438 (Version 2)
Quarter: 2013Q1

REPORT INFORMATION
  Report Type: Spontaneous
  Country: US (occurrence: US)
  Receive Date: 20130119
  Receipt Date: 20130130
  Transmission Date: 20140127
  Serious: Yes (Other)
  Sender: FDA-Public Use
  Company Number: US-009507513-1301USA008723

PATIENT
  Sex: Female

DRUGS (4)
  1. PEGINTRON [Suspect]
     Indication: HEPATITIS C
     Dosage: UNK
     Dates: start: 20110407, end: 20120308
  2. PEGINTRON [Suspect]
     Dosage: UNK
     Dates: start: 20130116
  3. RIBAVIRIN [Suspect]
     Indication: HEPATITIS C
     Dosage: UNK
     Dates: start: 20110407, end: 20120308
  4. RIBAVIRIN [Suspect]
     Dosage: UNK
     Dates: start: 20130116

REACTIONS (5)
  - Anaemia [Unknown]
  - Drug ineffective [Unknown]
  - Therapeutic response decreased [Unknown]
  - Rash [Unknown]
  - Pruritus [Unknown]
